FAERS Safety Report 12411556 (Version 1)
Quarter: 2016Q2

REPORT INFORMATION
  Report Type: Spontaneous
  Country: US (occurrence: None)
  Receive Date: 20160526
  Receipt Date: 20160526
  Transmission Date: 20160815
  Serious: No
  Sender: FDA-Public Use
  Company Number: None

PATIENT
  Age: 60 Year
  Sex: Female
  Weight: 79.38 kg

DRUGS (6)
  1. MULTI VITAMIN [Concomitant]
     Active Substance: VITAMINS
  2. CELEBREX [Suspect]
     Active Substance: CELECOXIB
     Indication: ARTHRITIS
     Dosage: 200 MG 1 CAPSULE ONCE DAILY MOUTH
     Route: 048
     Dates: start: 20141130, end: 20141229
  3. CELECOXIB 200 MG GENERIC FOR C ELEBREX ACTAVI [Concomitant]
     Active Substance: CELECOXIB
     Indication: ARTHRITIS
     Dosage: 200 MG ONE CAPSULE DAILY
     Route: 048
     Dates: start: 20151212, end: 20160306
  4. OSTEO-BIFLEX [Concomitant]
  5. CELECOXIB 200 MG CAPSULE GENERI C FOR CELEBREX APOTEX CORP. [Suspect]
     Active Substance: CELECOXIB
     Indication: ARTHRITIS
     Dosage: 200 MG 1 PILL DAILY
     Route: 048
     Dates: start: 20150922, end: 20151218
  6. MAGNESIUM [Concomitant]
     Active Substance: MAGNESIUM

REACTIONS (2)
  - Drug ineffective [None]
  - Product substitution issue [None]

NARRATIVE: CASE EVENT DATE: 20141130
